FAERS Safety Report 5093854-X (Version None)
Quarter: 2006Q3

REPORT INFORMATION
  Report Type: 
  Country: None (occurrence: None)
  Receive Date: 20060728
  Receipt Date: 20060509
  Transmission Date: 20061208
  Serious: No
  Sender: FDA-Public Use
  Company Number: 253094

PATIENT
  Age: 78 Year
  Sex: Male
  Weight: 72.6 kg

DRUGS (5)
  1. LEVEMIR [Suspect]
     Indication: INSULIN-REQUIRING TYPE II DIABETES MELLITUS
     Dosage: 15 IU, QD, SUBCUTANEOUS
     Route: 058
     Dates: start: 20060201
  2. AMARYL [Concomitant]
  3. LOPRESSOR [Concomitant]
  4. CADUET (ATORVASTATIN CALCIUM, AMLODIPINE BESILATE) [Concomitant]
  5. LISINOPRIL [Concomitant]

REACTIONS (1)
  - BLOOD GLUCOSE INCREASED [None]
